FAERS Safety Report 5927493-2 (Version None)
Quarter: 2008Q4

REPORT INFORMATION
  Report Type: 
  Country: None (occurrence: None)
  Receive Date: 20081023
  Receipt Date: 20081014
  Transmission Date: 20090506
  Serious: Yes (Hospitalization)
  Sender: FDA-Public Use
  Company Number: US-JNJFOC-20080805314

PATIENT
  Sex: Male

DRUGS (9)
  1. HALODOL [Suspect]
     Indication: DRUG USE FOR UNKNOWN INDICATION
     Route: 065
  2. NEURONTIN [Concomitant]
     Dosage: 3 TIMES PER DAY
     Route: 065
  3. KLONOPIN [Concomitant]
     Route: 065
  4. SERAQUEL [Concomitant]
     Dosage: 3 TIMES PER DAY
     Route: 065
  5. ADDERAX [Concomitant]
     Dosage: 3 TIMES PER DAY
     Route: 065
  6. GLUCOSAMINE CONJOINTIN [Concomitant]
     Dosage: 3 TIMES PER DAY
     Route: 065
  7. FISH OIL [Concomitant]
     Dosage: 3 TIMES PER DAY
     Route: 065
  8. PROPRANOLOL [Concomitant]
     Indication: CARDIAC DISORDER
     Dosage: 3 TIMES DAILY
     Route: 065
  9. ADVAIR DISKUS 100/50 [Concomitant]
     Indication: ASTHMA
     Route: 065

REACTIONS (1)
  - FEELING ABNORMAL [None]
